FAERS Safety Report 14467229 (Version 1)
Quarter: 2018Q1

REPORT INFORMATION
  Report Type: Spontaneous
  Country: US (occurrence: US)
  Receive Date: 20180130
  Receipt Date: 20180130
  Transmission Date: 20180509
  Serious: Yes (Hospitalization)
  Sender: FDA-Public Use
  Company Number: None

PATIENT
  Age: 56 Year
  Sex: Female

DRUGS (22)
  1. SULFAMETHAZ [Concomitant]
  2. PREMARWIN [Concomitant]
  3. PLAVIX [Concomitant]
     Active Substance: CLOPIDOGREL BISULFATE
  4. LEVOXYL [Concomitant]
     Active Substance: LEVOTHYROXINE SODIUM
  5. TACROLIMUS  0.5MG [Suspect]
     Active Substance: TACROLIMUS
     Indication: TRANSPLANT
     Route: 048
     Dates: start: 2010
  6. FORTEO [Suspect]
     Active Substance: TERIPARATIDE
     Dates: start: 201605
  7. METOPROLOL. [Concomitant]
     Active Substance: METOPROLOL
  8. PREDNISONE. [Concomitant]
     Active Substance: PREDNISONE
  9. ELIQUIS [Concomitant]
     Active Substance: APIXABAN
  10. DEXILANT [Concomitant]
     Active Substance: DEXLANSOPRAZOLE
  11. PROGRAF [Concomitant]
     Active Substance: TACROLIMUS\TACROLIMUS ANHYDROUS
  12. ASPIRIN. [Concomitant]
     Active Substance: ASPIRIN
  13. DRONABINOL. [Concomitant]
     Active Substance: DRONABINOL
  14. FUROSEMIDE. [Concomitant]
     Active Substance: FUROSEMIDE
  15. COUMADIN [Concomitant]
     Active Substance: WARFARIN SODIUM
  16. ITRACONAZOLE. [Concomitant]
     Active Substance: ITRACONAZOLE
  17. ASPIRIN. [Concomitant]
     Active Substance: ASPIRIN
  18. BRILINTA [Concomitant]
     Active Substance: TICAGRELOR
  19. SOD BICARB [Concomitant]
  20. IMURAN [Concomitant]
     Active Substance: AZATHIOPRINE
  21. VITAMIN D [Concomitant]
     Active Substance: CHOLECALCIFEROL
  22. FOLIC ACID. [Concomitant]
     Active Substance: FOLIC ACID

REACTIONS (1)
  - Dehydration [None]

NARRATIVE: CASE EVENT DATE: 20180101
